FAERS Safety Report 12188881 (Version 1)
Quarter: 2016Q1

REPORT INFORMATION
  Report Type: Spontaneous
  Country: None (occurrence: US)
  Receive Date: 20160317
  Receipt Date: 20160317
  Transmission Date: 20160526
  Serious: No
  Sender: FDA-Public Use
  Company Number: US-PERRIGO-15US005694

PATIENT
  Age: 63 Year
  Sex: Male
  Weight: 94.33 kg

DRUGS (10)
  1. AMBIEN [Concomitant]
     Active Substance: ZOLPIDEM TARTRATE
     Indication: INSOMNIA
     Dosage: UNK
     Route: 048
  2. ANTIHYPERTENSIVES [Concomitant]
     Active Substance: UNSPECIFIED INGREDIENT
     Indication: HYPERTENSION
     Dosage: UNK
     Route: 048
  3. TESTOSTERONE CYPIONATE. [Suspect]
     Active Substance: TESTOSTERONE CYPIONATE
     Indication: BLOOD TESTOSTERONE DECREASED
     Dosage: 200 MG, WEEKLY
     Route: 030
     Dates: start: 20150414, end: 20150528
  4. WELLBUTRIN [Concomitant]
     Active Substance: BUPROPION HYDROCHLORIDE
     Indication: DEPRESSION
     Dosage: UNK
     Route: 048
  5. LISINOPRIL. [Concomitant]
     Active Substance: LISINOPRIL
     Indication: HYPERTENSION
     Dosage: UNK
     Route: 048
  6. KLONOPIN [Concomitant]
     Active Substance: CLONAZEPAM
     Indication: INSOMNIA
     Dosage: UNK
     Route: 048
  7. AMITRIPTYLINE [Concomitant]
     Active Substance: AMITRIPTYLINE
     Indication: PRODUCT USED FOR UNKNOWN INDICATION
     Dosage: UNK
     Route: 048
  8. CYTOMEL [Concomitant]
     Active Substance: LIOTHYRONINE SODIUM
     Indication: HYPOTHYROIDISM
     Dosage: UNK
     Route: 048
  9. VITAMIN D3 [Concomitant]
     Active Substance: CHOLECALCIFEROL
     Indication: VITAMIN SUPPLEMENTATION
     Dosage: UNK
     Route: 048
  10. HORMONES AND RELATED AGENTS [Concomitant]
     Active Substance: UNSPECIFIED INGREDIENT
     Indication: HORMONE THERAPY
     Dosage: UNK
     Route: 065

REACTIONS (4)
  - Drug ineffective [Unknown]
  - Inappropriate schedule of drug administration [Recovered/Resolved]
  - Weight increased [Not Recovered/Not Resolved]
  - Asthenia [Not Recovered/Not Resolved]

NARRATIVE: CASE EVENT DATE: 20150414
